FAERS Safety Report 7412304-9 (Version None)
Quarter: 2011Q2

REPORT INFORMATION
  Report Type: 
  Country: None (occurrence: None)
  Receive Date: 20110413
  Receipt Date: 20110404
  Transmission Date: 20111010
  Serious: Yes (Other)
  Sender: FDA-Public Use
  Company Number: TR-ROCHE-770305

PATIENT
  Sex: Female

DRUGS (2)
  1. DOXORUBICIN [Concomitant]
  2. HERCEPTIN [Suspect]
     Dosage: DISCONTINUED.
     Route: 065

REACTIONS (1)
  - MITRAL VALVE INCOMPETENCE [None]
